FAERS Safety Report 25117992 (Version 1)
Quarter: 2025Q1

REPORT INFORMATION
  Report Type: Spontaneous
  Country: BE (occurrence: BE)
  Receive Date: 20250325
  Receipt Date: 20250325
  Transmission Date: 20250409
  Serious: Yes (Life-Threatening, Hospitalization)
  Sender: PFIZER
  Company Number: None

PATIENT
  Age: 82 Year
  Sex: Male
  Weight: 70 kg

DRUGS (1)
  1. VFEND [Suspect]
     Active Substance: VORICONAZOLE
     Indication: Candida infection
     Dosage: 300 MG, 2X/DAY
     Route: 042
     Dates: start: 20250213, end: 20250220

REACTIONS (4)
  - Acute kidney injury [Not Recovered/Not Resolved]
  - Blood creatine increased [Not Recovered/Not Resolved]
  - Hepatic enzyme increased [Not Recovered/Not Resolved]
  - Drug level increased [Not Recovered/Not Resolved]

NARRATIVE: CASE EVENT DATE: 20240218
